FAERS Safety Report 8305434 (Version 4)
Quarter: 2013Q4

REPORT INFORMATION
  Report Type: Spontaneous
  Country: US (occurrence: US)
  Receive Date: 20111221
  Receipt Date: 20131217
  Transmission Date: 20140711
  Serious: Yes (Hospitalization)
  Sender: FDA-Public Use
  Company Number: US-JNJFOC-20111205545

PATIENT
  Age: 64 Year
  Sex: Female
  Weight: 67.59 kg

DRUGS (10)
  1. REMICADE [Suspect]
     Indication: PSORIASIS
     Dosage: EVERY 6 TO 7 WEEKS
     Route: 042
     Dates: start: 2003
  2. REMICADE [Suspect]
     Indication: PSORIASIS
     Route: 042
     Dates: end: 20111027
  3. REMICADE [Suspect]
     Indication: PSORIASIS
     Route: 042
     Dates: start: 20100907
  4. REMICADE [Suspect]
     Indication: ARTHRITIS
     Route: 042
     Dates: start: 20100907
  5. REMICADE [Suspect]
     Indication: ARTHRITIS
     Route: 042
     Dates: end: 20111027
  6. REMICADE [Suspect]
     Indication: ARTHRITIS
     Dosage: EVERY 6 TO 7 WEEKS
     Route: 042
     Dates: start: 2003
  7. METHOTREXATE [Concomitant]
     Indication: PSORIATIC ARTHROPATHY
     Route: 065
  8. ASPIRIN [Concomitant]
     Route: 048
  9. VITAMIN D [Concomitant]
     Route: 065
  10. MULTIVITAMINS [Concomitant]
     Route: 065

REACTIONS (1)
  - Myocardial infarction [Recovered/Resolved]
